FAERS Safety Report 9518207 (Version 1)
Quarter: 2013Q3

REPORT INFORMATION
  Report Type: Spontaneous
  Country: RU (occurrence: RU)
  Receive Date: 20130912
  Receipt Date: 20130912
  Transmission Date: 20140515
  Serious: Yes (Other)
  Sender: FDA-Public Use
  Company Number: RU-JNJFOC-20130901929

PATIENT
  Age: 62 Year
  Sex: Female

DRUGS (2)
  1. MEBENDAZOLE [Suspect]
     Indication: MALIGNANT MELANOMA
     Route: 048
  2. MEBENDAZOLE [Suspect]
     Indication: MALIGNANT MELANOMA
     Route: 048

REACTIONS (4)
  - Skin toxicity [Unknown]
  - Vitiligo [Unknown]
  - Off label use [Unknown]
  - Therapeutic response unexpected [Unknown]
